FAERS Safety Report 4559108-2 (Version None)
Quarter: 2005Q1

REPORT INFORMATION
  Report Type: 
  Country: None (occurrence: None)
  Receive Date: 20050119
  Receipt Date: 20050103
  Transmission Date: 20050727
  Serious: Yes (Hospitalization)
  Sender: FDA-Public Use
  Company Number: DSA_25598_2005

PATIENT
  Age: 86 Year
  Sex: Female

DRUGS (7)
  1. ENALAPRIL MALEATE [Suspect]
     Indication: HYPERTENSION
     Dosage: DF PO
     Route: 048
  2. ANTHOCYANINS [Suspect]
     Dosage: DF PO
     Route: 048
  3. ACEBUTOLOL HCL [Suspect]
     Dosage: DF PO
     Route: 048
  4. NAFRONYL OXALATE [Suspect]
     Dosage: DF PO
     Route: 048
  5. IMATINIB MESYLATE [Suspect]
     Indication: CHRONIC MYELOID LEUKAEMIA
     Dosage: 400 MG Q DAY PO
     Route: 048
     Dates: start: 20021029, end: 20030602
  6. ACENOCOUMAROL [Suspect]
     Dosage: DF PO
     Route: 048
  7. CORTICOSTEROIDS [Concomitant]

REACTIONS (3)
  - LEUKOPENIA [None]
  - NEUTROPENIA [None]
  - THROMBOCYTOPENIA [None]
